FAERS Safety Report 4622945-X (Version None)
Quarter: 2005Q1

REPORT INFORMATION
  Report Type: 
  Country: None (occurrence: None)
  Receive Date: 20050329
  Receipt Date: 20031125
  Transmission Date: 20050727
  Serious: No
  Sender: FDA-Public Use
  Company Number: 10055

PATIENT
  Age: 66 Year
  Sex: Male

DRUGS (6)
  1. METHOTREXATE [Suspect]
     Dosage: 0.571 MG/0.875 MG/1.143 MG
     Dates: start: 20021204, end: 20021217
  2. METHOTREXATE [Suspect]
     Dosage: 0.571 MG/0.875 MG/1.143 MG
     Dates: start: 20021218, end: 20030507
  3. METHOTREXATE [Suspect]
     Dosage: 0.571 MG/0.875 MG/1.143 MG
     Dates: start: 20030508, end: 20031023
  4. ACTARIT [Concomitant]
  5. PREDNISOLONE [Concomitant]
  6. SULFASALAZINE [Concomitant]

REACTIONS (6)
  - ALOPECIA [None]
  - CYTOMEGALOVIRUS INFECTION [None]
  - PANCYTOPENIA [None]
  - PNEUMONIA [None]
  - RENAL IMPAIRMENT [None]
  - STOMATITIS [None]
